FAERS Safety Report 6332344-0 (Version None)
Quarter: 2009Q3

REPORT INFORMATION
  Report Type: 
  Country: None (occurrence: None)
  Receive Date: 20090827
  Receipt Date: 20090827
  Transmission Date: 20100115
  Serious: No
  Sender: FDA-Public Use
  Company Number: None

PATIENT
  Age: 62 Year
  Sex: Female
  Weight: 97.5234 kg

DRUGS (1)
  1. NEURONTIN [Suspect]
     Dosage: ONE TAB AM 3 TAB PM

REACTIONS (4)
  - DRUG INEFFECTIVE [None]
  - IMPAIRED WORK ABILITY [None]
  - PAIN [None]
  - PRODUCT SUBSTITUTION ISSUE [None]
